FAERS Safety Report 21309050 (Version 2)
Quarter: 2022Q3

REPORT INFORMATION
  Report Type: Spontaneous
  Country: US (occurrence: US)
  Receive Date: 20220908
  Receipt Date: 20220921
  Transmission Date: 20221026
  Serious: Yes (Hospitalization)
  Sender: FDA-Public Use
  Company Number: US-TEVA-2022-US-2070202

PATIENT
  Age: 63 Year
  Sex: Female

DRUGS (24)
  1. CARBOPLATIN [Suspect]
     Active Substance: CARBOPLATIN
     Indication: Invasive ductal breast carcinoma
     Dosage: RECEIVED 5 CYCLES
     Route: 065
  2. DEXAMETHASONE [Suspect]
     Active Substance: DEXAMETHASONE
     Indication: Cancer pain
     Dosage: 10 MILLIGRAM DAILY;
     Route: 042
  3. GABAPENTIN [Suspect]
     Active Substance: GABAPENTIN
     Indication: Cancer pain
     Dosage: THREE TIMES DAILY , UNIT DOSE : 300 MG
     Route: 065
  4. GEMCITABINE [Suspect]
     Active Substance: GEMCITABINE
     Indication: Invasive ductal breast carcinoma
     Dosage: RECEIVED 5 CYCLES
     Route: 065
  5. HYDROMORPHONE [Suspect]
     Active Substance: HYDROMORPHONE
     Indication: Cancer pain
     Dosage: EVERY 4 HOURS AS NEEDED, UNIT DOSE : 1 MG
     Route: 042
  6. HYDROMORPHONE [Suspect]
     Active Substance: HYDROMORPHONE
     Dosage: A DEMAND DOSE OF 0.5 MG, 10 MIN LOCKOUT
     Route: 065
  7. HYDROMORPHONE [Suspect]
     Active Substance: HYDROMORPHONE
     Dosage: 0.6 MG/HR WITH 1 MG IV AVAILABLE EVERY 1 HOUR AS NEEDED.
     Route: 041
  8. HYDROMORPHONE [Suspect]
     Active Substance: HYDROMORPHONE
     Dosage: 1 MG IV EVERY 1 HOUR AS NEEDED.
     Route: 042
  9. HYDROMORPHONE [Suspect]
     Active Substance: HYDROMORPHONE
     Dosage: 0.8 MG/HR
     Route: 041
  10. OXYCODONE [Suspect]
     Active Substance: OXYCODONE
     Indication: Cancer pain
     Dosage: USING 5 TIMES DAILY ON AVERAGE
     Route: 065
  11. METHADONE [Suspect]
     Active Substance: METHADONE HYDROCHLORIDE
     Indication: Cancer pain
     Dosage: 10 MILLIGRAM DAILY; SHE WAS TAKING TWICE A DAY
     Route: 065
  12. ATIVAN [Suspect]
     Active Substance: LORAZEPAM
     Indication: Anxiety
     Dosage: AS NEEDED BEFORE IMAGING STUDIES , UNIT DOSE : 0.5 MG
     Route: 048
  13. ATIVAN [Suspect]
     Active Substance: LORAZEPAM
     Dosage: 0.5 MG PO Q 6 HOURS AS NEEDED
     Route: 048
  14. LEXAPRO [Suspect]
     Active Substance: ESCITALOPRAM OXALATE
     Indication: Generalised anxiety disorder
     Dosage: 5 MILLIGRAM DAILY;
     Route: 065
  15. LIDOCAINE [Suspect]
     Active Substance: LIDOCAINE
     Indication: Cancer pain
     Dosage: 1.5 MG/KG
     Route: 040
  16. LIDOCAINE [Suspect]
     Active Substance: LIDOCAINE
     Dosage: 1 MG/KG/HR
     Route: 042
  17. LIDOCAINE [Suspect]
     Active Substance: LIDOCAINE
     Dosage: 1.5 MG/KG/HR
     Route: 042
  18. CHLORPROMAZINE [Suspect]
     Active Substance: CHLORPROMAZINE
     Indication: Delirium
     Dosage: 25 MG IV INFUSED OVER 30 MINUTES
     Route: 041
  19. CHLORPROMAZINE [Suspect]
     Active Substance: CHLORPROMAZINE
     Indication: Insomnia
     Dosage: 75 MILLIGRAM DAILY;
     Route: 042
  20. TRAZODONE [Concomitant]
     Active Substance: TRAZODONE HYDROCHLORIDE
     Indication: Insomnia
     Dosage: 25 MG EVERY NIGHT AT BED TIME WITH AN ADDITIONAL DOSE 25 MG AS NEEDED
     Route: 065
  21. TRAZODONE [Concomitant]
     Active Substance: TRAZODONE HYDROCHLORIDE
     Dosage: 150 MILLIGRAM DAILY; EVERY NIGHT AT BED TIME
     Route: 065
  22. RISPERIDONE [Concomitant]
     Active Substance: RISPERIDONE
     Indication: Generalised anxiety disorder
     Dosage: 0.5 MG EVERY 4 HOURS AS NEEDED
     Route: 065
  23. RISPERIDONE [Concomitant]
     Active Substance: RISPERIDONE
     Indication: Hallucination
  24. RISPERIDONE [Concomitant]
     Active Substance: RISPERIDONE
     Indication: Panic disorder

REACTIONS (4)
  - Drug ineffective [Unknown]
  - Delirium [Recovering/Resolving]
  - Agitation [Recovering/Resolving]
  - Hallucination [Recovering/Resolving]
